FAERS Safety Report 4712552-2 (Version None)
Quarter: 2005Q2

REPORT INFORMATION
  Report Type: 
  Country: None (occurrence: None)
  Receive Date: 20050629
  Receipt Date: 20050412
  Transmission Date: 20051028
  Serious: No
  Sender: FDA-Public Use
  Company Number: 05P-163-0297205-00

PATIENT
  Age: 60 Year
  Sex: Female
  Weight: 94.3482 kg

DRUGS (6)
  1. HUMIRA [Suspect]
     Indication: RHEUMATOID ARTHRITIS
     Dosage: 40 MG, 1 IN 2 WK, SUBCUTANEOUS
     Route: 058
     Dates: start: 20040701, end: 20050320
  2. SULFASALAZINE [Concomitant]
  3. COUMADIN [Concomitant]
  4. PREDNISONE [Concomitant]
  5. HYDROCHLOROQUINE PHOSPHATE [Concomitant]
  6. LEVOTHYROXINE SODIUM [Concomitant]

REACTIONS (4)
  - COUGH [None]
  - LYMPHOEDEMA [None]
  - NASOPHARYNGITIS [None]
  - VAGINAL MYCOSIS [None]
